FAERS Safety Report 7713625-2 (Version None)
Quarter: 2011Q3

REPORT INFORMATION
  Report Type: 
  Country: None (occurrence: None)
  Receive Date: 20110826
  Receipt Date: 20110825
  Transmission Date: 20111222
  Serious: Yes (Life-Threatening)
  Sender: FDA-Public Use
  Company Number: CHPA2011GB11404

PATIENT
  Age: 65 Year
  Sex: Male
  Weight: 75 kg

DRUGS (8)
  1. LANSOPRAZOLE [Concomitant]
     Dosage: UNK, UNK
     Route: 065
  2. BUPIVACAINE HCL [Concomitant]
     Dosage: 15 MG, UNK
     Route: 008
  3. CHLORHEXIDINE GLUCONATE [Suspect]
     Indication: THERAPEUTIC PROCEDURE
     Dosage: UNK, UNK
     Route: 061
     Dates: start: 20110808, end: 20110808
  4. THIAMINE [Concomitant]
     Dosage: UNK, UNK
     Route: 048
  5. VITAMIN B COMPLEX CAP [Concomitant]
     Dosage: UNK, UNK
     Route: 048
  6. ROCURONIUM BROMIDE [Suspect]
     Indication: ANAESTHESIA
     Dosage: 50 MG, UNK
     Route: 042
     Dates: start: 20110808, end: 20110808
  7. LIDOCAINE [Concomitant]
     Indication: ANAESTHESIA
     Dosage: 10 MG, UNK
     Route: 058
     Dates: start: 20110808, end: 20110808
  8. METRONIDAZOLE [Concomitant]
     Indication: PROPHYLAXIS
     Dosage: 500 MG/H, UNK
     Route: 042
     Dates: start: 20110808, end: 20110808

REACTIONS (1)
  - CIRCULATORY COLLAPSE [None]
